FAERS Safety Report 22238257 (Version 1)
Quarter: 2023Q2

REPORT INFORMATION
  Report Type: Spontaneous
  Country: CA (occurrence: CA)
  Receive Date: 20230421
  Receipt Date: 20230421
  Transmission Date: 20230721
  Serious: No
  Sender: FDA-Public Use
  Company Number: CA-ALKEM LABORATORIES LIMITED-CA-ALKEM-2023-01727

PATIENT
  Sex: Female

DRUGS (2)
  1. ADALIMUMAB [Interacting]
     Active Substance: ADALIMUMAB
     Indication: Inflammatory bowel disease
     Dosage: 40 MILLIGRAM (INJECTION EITHER BI-WEEKLY OR WEEKLY)
     Route: 058
  2. AZATHIOPRINE [Interacting]
     Active Substance: AZATHIOPRINE
     Indication: Immunosuppression
     Dosage: UNK
     Route: 065

REACTIONS (4)
  - Rash [Unknown]
  - Drug level increased [Unknown]
  - Drug interaction [Unknown]
  - Exposure during pregnancy [Unknown]
